FAERS Safety Report 9361046 (Version 2)
Quarter: 2013Q3

REPORT INFORMATION
  Report Type: Spontaneous
  Country: US (occurrence: None)
  Receive Date: 20130618
  Receipt Date: 20130703
  Transmission Date: 20140515
  Serious: Yes (Hospitalization)
  Sender: FDA-Public Use
  Company Number: JPI-P-032805

PATIENT
  Age: 53 Year
  Sex: Female
  Weight: 68.95 kg

DRUGS (1)
  1. XYREM (500 MILLIGRAM/MILLILITERS, SOLUTION) (SODIUM OXYBATE) [Suspect]
     Indication: CATAPLEXY
     Dosage: 4.5 GM (2.25 GM, 2 IN 1 D), ORAL
     Route: 048
     Dates: start: 20060626, end: 2006

REACTIONS (4)
  - Cough [None]
  - Pneumonia [None]
  - Blood immunoglobulin G decreased [None]
  - Immunosuppression [None]
